FAERS Safety Report 15484901 (Version 1)
Quarter: 2018Q4

REPORT INFORMATION
  Report Type: Spontaneous
  Country: US (occurrence: US)
  Receive Date: 20181010
  Receipt Date: 20181010
  Transmission Date: 20190205
  Serious: No
  Sender: FDA-Public Use
  Company Number: US-ROCHE-2080165

PATIENT
  Sex: Female
  Weight: 96.7 kg

DRUGS (10)
  1. ZELBORAF [Suspect]
     Active Substance: VEMURAFENIB
     Indication: REMISSION NOT ACHIEVED
     Route: 048
     Dates: start: 20160803
  2. ZELBORAF [Suspect]
     Active Substance: VEMURAFENIB
     Route: 048
     Dates: start: 20160805
  3. ZELBORAF [Suspect]
     Active Substance: VEMURAFENIB
     Route: 048
     Dates: start: 20160809, end: 20160819
  4. LOVAZA [Concomitant]
     Active Substance: OMEGA-3-ACID ETHYL ESTERS
     Route: 048
     Dates: start: 20160802
  5. ZELBORAF [Suspect]
     Active Substance: VEMURAFENIB
     Dosage: 3 TABLETS TWICE DAILY
     Route: 048
     Dates: start: 20171120
  6. COD LIVER OIL [Concomitant]
     Active Substance: COD LIVER OIL
     Route: 048
     Dates: start: 20160802
  7. ZELBORAF [Suspect]
     Active Substance: VEMURAFENIB
     Dosage: 3 TABS
     Route: 048
     Dates: start: 20160916
  8. LASIX [Concomitant]
     Active Substance: FUROSEMIDE
     Route: 048
     Dates: start: 20160802
  9. MAXZIDE [Concomitant]
     Active Substance: HYDROCHLOROTHIAZIDE\TRIAMTERENE
     Route: 048
     Dates: start: 20160802
  10. NAPROXEN. [Concomitant]
     Active Substance: NAPROXEN
     Route: 048
     Dates: start: 20160802

REACTIONS (3)
  - Melanocytic naevus [Unknown]
  - Intentional product use issue [Unknown]
  - Off label use [Unknown]
